FAERS Safety Report 9153963 (Version 1)
Quarter: 2013Q1

REPORT INFORMATION
  Report Type: Spontaneous
  Country: US (occurrence: None)
  Receive Date: 20130308
  Receipt Date: 20130308
  Transmission Date: 20140127
  Serious: Yes (Hospitalization)
  Sender: FDA-Public Use
  Company Number: None

PATIENT
  Age: 31 Year
  Sex: Male
  Weight: 84.82 kg

DRUGS (3)
  1. ESCITALOPRAM 20MG [Suspect]
     Indication: ANXIETY DISORDER
     Dosage: 15 MG TO 20 MG
     Route: 048
     Dates: start: 20130115, end: 20130304
  2. ESCITALOPRAM 20MG [Suspect]
     Indication: DEPRESSION
     Dosage: 15 MG TO 20 MG
     Route: 048
     Dates: start: 20130115, end: 20130304
  3. LEXAPRO [Concomitant]

REACTIONS (7)
  - Anxiety [None]
  - Palpitations [None]
  - Feeling abnormal [None]
  - Suicidal ideation [None]
  - Headache [None]
  - Product substitution issue [None]
  - Condition aggravated [None]
